FAERS Safety Report 5186234-X (Version None)
Quarter: 2006Q4

REPORT INFORMATION
  Report Type: 
  Country: None (occurrence: None)
  Receive Date: 20061220
  Receipt Date: 20061219
  Transmission Date: 20070319
  Serious: Yes (Other)
  Sender: FDA-Public Use
  Company Number: US-GLAXOSMITHKLINE-A0632078A

PATIENT
  Age: 89 Year
  Sex: Female

DRUGS (5)
  1. DEBROX [Suspect]
     Route: 001
     Dates: start: 20061215, end: 20061218
  2. FOSAMAX [Concomitant]
  3. COUMADIN [Concomitant]
  4. CENTRUM SILVER [Concomitant]
  5. LISINOPRIL [Concomitant]

REACTIONS (1)
  - DEAFNESS [None]
